FAERS Safety Report 11519570 (Version 2)
Quarter: 2015Q4

REPORT INFORMATION
  Report Type: Report from Study
  Country: CA (occurrence: CA)
  Receive Date: 20150918
  Receipt Date: 20151023
  Transmission Date: 20160304
  Serious: No
  Sender: FDA-Public Use
  Company Number: CA-ROCHE-ITM201501IM009005

PATIENT
  Sex: Male

DRUGS (10)
  1. COVERSYL [Concomitant]
     Active Substance: PERINDOPRIL
  2. ATIVAN [Concomitant]
     Active Substance: LORAZEPAM
  3. ESBRIET [Suspect]
     Active Substance: PIRFENIDONE
     Route: 048
     Dates: start: 20131115
  4. ESBRIET [Suspect]
     Active Substance: PIRFENIDONE
     Route: 048
  5. ESBRIET [Suspect]
     Active Substance: PIRFENIDONE
     Route: 048
     Dates: start: 20131022
  6. OXYGEN. [Concomitant]
     Active Substance: OXYGEN
  7. ESBRIET [Suspect]
     Active Substance: PIRFENIDONE
     Indication: IDIOPATHIC PULMONARY FIBROSIS
     Route: 048
     Dates: start: 20130110
  8. ESBRIET [Suspect]
     Active Substance: PIRFENIDONE
     Dosage: AT BED TIME
     Route: 048
     Dates: start: 201508, end: 201510
  9. LIPITOR [Concomitant]
     Active Substance: ATORVASTATIN CALCIUM
  10. TECTA [Concomitant]
     Active Substance: PANTOPRAZOLE MAGNESIUM

REACTIONS (1)
  - Nausea [Not Recovered/Not Resolved]
